FAERS Safety Report 5360966-2 (Version None)
Quarter: 2007Q2

REPORT INFORMATION
  Report Type: 
  Country: None (occurrence: None)
  Receive Date: 20070530
  Receipt Date: 20070210
  Transmission Date: 20071010
  Serious: No
  Sender: FDA-Public Use
  Company Number: 2007PV029856

PATIENT
  Age: 63 Year
  Sex: Male
  Weight: 122.4712 kg

DRUGS (11)
  1. BYETTA [Suspect]
     Indication: DIABETES MELLITUS NON-INSULIN-DEPENDENT
     Dosage: SEE IMAGE
     Route: 058
     Dates: start: 20050801, end: 20050901
  2. BYETTA [Suspect]
     Indication: DIABETES MELLITUS NON-INSULIN-DEPENDENT
     Dosage: SEE IMAGE
     Route: 058
     Dates: start: 20050901
  3. CYMBALTA [Suspect]
     Indication: DEPRESSION
     Dosage: 30 MG; BID; PO
     Route: 048
  4. INSULIN [Concomitant]
  5. AMARYL [Concomitant]
  6. METFORMIN HCL [Concomitant]
  7. LYRICA [Concomitant]
  8. VICODIN [Concomitant]
  9. NEURONTIN [Concomitant]
  10. MEDROL [Suspect]
     Indication: BACK PAIN
     Dosage: PO
     Route: 048
  11. SPINAL EPIDURAL [Suspect]
     Indication: BACK PAIN

REACTIONS (8)
  - BACK PAIN [None]
  - BLOOD GLUCOSE INCREASED [None]
  - DECREASED APPETITE [None]
  - DEPRESSION [None]
  - FALL [None]
  - INTERVERTEBRAL DISC PROTRUSION [None]
  - LOCALISED INFECTION [None]
  - WEIGHT DECREASED [None]
